FAERS Safety Report 10048583 (Version 1)
Quarter: 2014Q1

REPORT INFORMATION
  Report Type: Spontaneous
  Country: GB (occurrence: GB)
  Receive Date: 20140331
  Receipt Date: 20140331
  Transmission Date: 20141002
  Serious: Yes (Hospitalization)
  Sender: FDA-Public Use
  Company Number: GB-B.I. PHARMACEUTICALS,INC./RIDGEFIELD-2014-BI-12820UK

PATIENT
  Age: 85 Year
  Sex: Male

DRUGS (1)
  1. TRAJENTA [Suspect]
     Indication: DIABETES MELLITUS
     Route: 048
     Dates: start: 20140207, end: 20140214

REACTIONS (1)
  - Liver function test abnormal [Not Recovered/Not Resolved]
